FAERS Safety Report 5740719-3 (Version None)
Quarter: 2008Q2

REPORT INFORMATION
  Report Type: 
  Country: None (occurrence: None)
  Receive Date: 20080516
  Receipt Date: 20080505
  Transmission Date: 20081010
  Serious: Yes (Other)
  Sender: FDA-Public Use
  Company Number: US-PFIZER INC-2008005032

PATIENT
  Sex: Female
  Weight: 77.1 kg

DRUGS (1)
  1. BEXTRA [Suspect]
     Indication: ANALGESIA
     Route: 048

REACTIONS (3)
  - ANXIETY [None]
  - DEPRESSION [None]
  - STEVENS-JOHNSON SYNDROME [None]
